FAERS Safety Report 5052646-8 (Version None)
Quarter: 2006Q3

REPORT INFORMATION
  Report Type: 
  Country: None (occurrence: None)
  Receive Date: 20060712
  Receipt Date: 20060712
  Transmission Date: 20061208
  Serious: Yes (Other)
  Sender: FDA-Public Use
  Company Number: None

PATIENT
  Age: 80 Year
  Sex: Male
  Weight: 75.1 kg

DRUGS (20)
  1. TERAZOSIN HCL [Suspect]
  2. LEVOTHYROXINE SODIUM [Concomitant]
  3. FOLIC ACID [Concomitant]
  4. TERAZOSIN HCL [Concomitant]
  5. PREDNISONE [Concomitant]
  6. PHENYTOIN [Concomitant]
  7. ACETAMINOPHEN [Concomitant]
  8. DOCUSATE/SENNOSIDES [Concomitant]
  9. MILK OF MAGNESIA TAB [Concomitant]
  10. LIDOCAINE [Concomitant]
  11. DIAZEPAM [Concomitant]
  12. PHENOBARBITAL TAB [Concomitant]
  13. FLUTICASONE PROP [Concomitant]
  14. SIMVASTATIN [Concomitant]
  15. OMEPRAZOLE [Concomitant]
  16. LUBRICATING [Concomitant]
  17. IPRATROPIUM BROMIDE [Concomitant]
  18. FLUOXETINE [Concomitant]
  19. ASPIRIN [Concomitant]
  20. ALBUTEROL SPIROS [Concomitant]

REACTIONS (1)
  - HYPOTENSION [None]
